FAERS Safety Report 11031704 (Version 2)
Quarter: 2015Q2

REPORT INFORMATION
  Report Type: Spontaneous
  Country: TN (occurrence: TN)
  Receive Date: 20150415
  Receipt Date: 20150422
  Transmission Date: 20150821
  Serious: Yes (Other)
  Sender: FDA-Public Use
  Company Number: PHHY2015TN044721

PATIENT
  Age: 48 Year
  Sex: Male

DRUGS (2)
  1. PREDNISOLONE. [Suspect]
     Active Substance: PREDNISOLONE
     Dosage: 0.3 MG/KG, QD
     Route: 065
  2. PREDNISOLONE. [Suspect]
     Active Substance: PREDNISOLONE
     Indication: INTERSTITIAL LUNG DISEASE
     Dosage: 0.75 MG/KG, QD
     Route: 065

REACTIONS (4)
  - Detachment of retinal pigment epithelium [Recovering/Resolving]
  - Chorioretinopathy [Recovering/Resolving]
  - Retinal detachment [Recovering/Resolving]
  - Vision blurred [Recovering/Resolving]
